FAERS Safety Report 8816307 (Version 1)
Quarter: 2012Q4

REPORT INFORMATION
  Report Type: Spontaneous
  Country: US (occurrence: None)
  Receive Date: 20120928
  Receipt Date: 20120928
  Transmission Date: 20130627
  Serious: Yes (Life-Threatening, Hospitalization)
  Sender: FDA-Public Use
  Company Number: None

PATIENT
  Age: 50 Year
  Sex: Male
  Weight: 107.3 kg

DRUGS (1)
  1. NAPROXEN [Suspect]
     Indication: PAIN
     Dosage: 500 MG EVERY DAY PO
     Route: 048
     Dates: start: 20120903, end: 20120918

REACTIONS (9)
  - Haematochezia [None]
  - Dizziness [None]
  - Hyperhidrosis [None]
  - Upper gastrointestinal haemorrhage [None]
  - Lower gastrointestinal haemorrhage [None]
  - Epistaxis [None]
  - Helicobacter test positive [None]
  - Dizziness [None]
  - Gastric haemorrhage [None]
